FAERS Safety Report 10057432 (Version 2)
Quarter: 2014Q2

REPORT INFORMATION
  Report Type: Spontaneous
  Country: US (occurrence: US)
  Receive Date: 20140403
  Receipt Date: 20140521
  Transmission Date: 20141212
  Serious: Yes (Hospitalization)
  Sender: FDA-Public Use
  Company Number: PHEH2014US006363

PATIENT
  Age: 60 Year
  Sex: Female
  Weight: 99.2 kg

DRUGS (1)
  1. CLOZARIL [Suspect]
     Dosage: 350 MG, DAILY
     Route: 048

REACTIONS (2)
  - Pneumonia [Unknown]
  - Dyspnoea [Recovered/Resolved]
